FAERS Safety Report 6978751-4 (Version None)
Quarter: 2010Q3

REPORT INFORMATION
  Report Type: 
  Country: None (occurrence: None)
  Receive Date: 20100913
  Receipt Date: 20100901
  Transmission Date: 20110219
  Serious: Yes (Other)
  Sender: FDA-Public Use
  Company Number: B0666938A

PATIENT
  Sex: Female

DRUGS (2)
  1. FLIXONASE [Suspect]
     Indication: RHINITIS ALLERGIC
     Dosage: 200MCG PER DAY
     Route: 065
     Dates: start: 20100215, end: 20100430
  2. NAFAZOLIN [Concomitant]
     Dosage: 20DROP PER DAY

REACTIONS (2)
  - DRUG INEFFECTIVE [None]
  - NASAL OEDEMA [None]
